FAERS Safety Report 15251622 (Version 4)
Quarter: 2019Q3

REPORT INFORMATION
  Report Type: Spontaneous
  Country: US (occurrence: US)
  Receive Date: 20180807
  Receipt Date: 20190709
  Transmission Date: 20191004
  Serious: No
  Sender: FDA-Public Use
  Company Number: US-SA-2018SA215282

PATIENT
  Age: 63 Year
  Sex: Female

DRUGS (1)
  1. KEVZARA [Suspect]
     Active Substance: SARILUMAB
     Indication: RHEUMATOID ARTHRITIS
     Dosage: 200 MG, QOW
     Route: 058
     Dates: start: 201807

REACTIONS (6)
  - Peripheral swelling [Unknown]
  - Localised infection [Unknown]
  - Muscular weakness [Unknown]
  - Weight decreased [Unknown]
  - Immune system disorder [Unknown]
  - Malaise [Unknown]

NARRATIVE: CASE EVENT DATE: 201807
